FAERS Safety Report 23243584 (Version 1)
Quarter: 2023Q4

REPORT INFORMATION
  Report Type: Report from Study
  Country: US (occurrence: US)
  Receive Date: 20231130
  Receipt Date: 20231130
  Transmission Date: 20240109
  Serious: Yes (Other)
  Sender: FDA-Public Use
  Company Number: US-ALXN-A202212345

PATIENT
  Sex: Male

DRUGS (1)
  1. ULTOMIRIS [Suspect]
     Active Substance: RAVULIZUMAB-CWVZ
     Indication: Atypical haemolytic uraemic syndrome
     Dosage: UNK
     Route: 065
     Dates: end: 202302

REACTIONS (12)
  - Frontotemporal dementia [Unknown]
  - Liver disorder [Unknown]
  - Thinking abnormal [Unknown]
  - Histrionic personality disorder [Unknown]
  - Pain [Unknown]
  - Laboratory test abnormal [Unknown]
  - Withdrawal syndrome [Unknown]
  - Asthenia [Unknown]
  - Headache [Recovering/Resolving]
  - Migraine [Unknown]
  - Illness [Unknown]
  - Fatigue [Unknown]
